FAERS Safety Report 9866931 (Version 1)
Quarter: 2014Q1

REPORT INFORMATION
  Report Type: Spontaneous
  Country: US (occurrence: US)
  Receive Date: 20140204
  Receipt Date: 20140204
  Transmission Date: 20141002
  Serious: No
  Sender: FDA-Public Use
  Company Number: US-PFIZER INC-2014029920

PATIENT
  Age: 60 Year
  Sex: Female

DRUGS (6)
  1. ERYTHROMYCIN [Suspect]
     Dosage: UNK
  2. DOXYCYCLINE HYCLATE [Suspect]
     Dosage: UNK
  3. NEURONTIN [Suspect]
     Dosage: UNK
  4. SEPTRA [Suspect]
     Dosage: UNK
  5. NITROFURANTOIN [Suspect]
     Dosage: UNK
  6. TETRACYCLINE HYDROCHLORIDE [Suspect]

REACTIONS (1)
  - Drug hypersensitivity [Unknown]
